FAERS Safety Report 17648904 (Version 2)
Quarter: 2020Q2

REPORT INFORMATION
  Report Type: Spontaneous
  Country: US (occurrence: US)
  Receive Date: 20200409
  Receipt Date: 20200620
  Transmission Date: 20200713
  Serious: Yes (Other)
  Sender: FDA-Public Use
  Company Number: US-SPECGX-T202000699

PATIENT
  Age: 9 Year
  Sex: Male

DRUGS (5)
  1. CLONIDINE. [Concomitant]
     Active Substance: CLONIDINE
     Indication: PRODUCT USED FOR UNKNOWN INDICATION
     Dosage: UNK
     Route: 065
  2. NALOXONE [Suspect]
     Active Substance: NALOXONE
     Indication: PRODUCT USED FOR UNKNOWN INDICATION
     Dosage: UNK
     Route: 065
  3. METHADONE [Suspect]
     Active Substance: METHADONE HYDROCHLORIDE
     Indication: PRODUCT USED FOR UNKNOWN INDICATION
     Dosage: UNK
     Route: 065
  4. SOLU-MEDROL [Suspect]
     Active Substance: METHYLPREDNISOLONE SODIUM SUCCINATE
     Indication: PRODUCT USED FOR UNKNOWN INDICATION
     Dosage: 30 MG/KG/D
     Route: 042
  5. CEFTRIAXONE. [Suspect]
     Active Substance: CEFTRIAXONE
     Indication: PRODUCT USED FOR UNKNOWN INDICATION
     Dosage: UNK
     Route: 042

REACTIONS (13)
  - Hypertension [Recovered/Resolved]
  - Seizure [Unknown]
  - Gait disturbance [Unknown]
  - Encephalitis [Recovered/Resolved]
  - Hyporesponsive to stimuli [Unknown]
  - Vomiting [Unknown]
  - Toxicity to various agents [Unknown]
  - Respiratory depression [Unknown]
  - Bradycardia [Recovered/Resolved]
  - Mental status changes [Unknown]
  - Posterior reversible encephalopathy syndrome [Recovered/Resolved]
  - Electrocardiogram QT prolonged [Recovering/Resolving]
  - Product use issue [Unknown]
